FAERS Safety Report 8134045-5 (Version None)
Quarter: 2012Q1

REPORT INFORMATION
  Report Type: 
  Country: None (occurrence: None)
  Receive Date: 20120214
  Receipt Date: 20120208
  Transmission Date: 20120608
  Serious: No
  Sender: FDA-Public Use
  Company Number: US-BIOGENIDEC-2012BI003306

PATIENT
  Age: 53 Year
  Sex: Female

DRUGS (3)
  1. CYMBALTA [Concomitant]
  2. ADDERALL 5 [Concomitant]
  3. TYSABRI [Suspect]
     Indication: MULTIPLE SCLEROSIS
     Route: 042
     Dates: start: 20110228, end: 20111227

REACTIONS (5)
  - DRY MOUTH [None]
  - DRUG INEFFECTIVE [None]
  - TONGUE ULCERATION [None]
  - GLOSSODYNIA [None]
  - PHARYNGEAL DISORDER [None]
